FAERS Safety Report 24652158 (Version 3)
Quarter: 2024Q4

REPORT INFORMATION
  Report Type: Report from Study
  Country: CA (occurrence: CA)
  Receive Date: 20241122
  Receipt Date: 20241212
  Transmission Date: 20250115
  Serious: Yes (Other)
  Sender: DR REDDYS
  Company Number: CA-DRL-USA-CLI/CAN/24/0017057

PATIENT
  Age: 35 Year
  Sex: Male

DRUGS (1)
  1. ZOLEDRONIC ACID [Suspect]
     Active Substance: ZOLEDRONIC ACID
     Indication: Osteoporosis
     Route: 065
     Dates: start: 20171003

REACTIONS (7)
  - Fall [Unknown]
  - Forearm fracture [Recovered/Resolved]
  - Joint dislocation [Recovered/Resolved]
  - Tibia fracture [Recovered/Resolved]
  - Fibula fracture [Recovered/Resolved]
  - Patella fracture [Recovering/Resolving]
  - Pelvic fracture [Recovering/Resolving]
